FAERS Safety Report 5646324-1 (Version None)
Quarter: 2008Q1

REPORT INFORMATION
  Report Type: 
  Country: None (occurrence: None)
  Receive Date: 20080227
  Receipt Date: 20080211
  Transmission Date: 20080703
  Serious: Yes (Other)
  Sender: FDA-Public Use
  Company Number: 2008JP000805

PATIENT
  Age: 47 Year
  Sex: Male

DRUGS (5)
  1. TACROLIMUS [Suspect]
     Indication: LIVER TRANSPLANT
     Dosage: 7 MG, BID, ORAL
     Route: 048
  2. PREDNISOLONE [Concomitant]
  3. CYCLOSPORINE [Concomitant]
  4. MYCOPHENOLATE MOFETIL (MUCOPHENOLATE MOFETIL) [Concomitant]
  5. OMNISCAN [Concomitant]

REACTIONS (7)
  - BILIARY ANASTOMOSIS COMPLICATION [None]
  - CONTINUOUS HAEMODIAFILTRATION [None]
  - METABOLIC ACIDOSIS [None]
  - NEPHROGENIC SYSTEMIC FIBROSIS [None]
  - PORTAL VEIN THROMBOSIS [None]
  - POST PROCEDURAL COMPLICATION [None]
  - RENAL FAILURE ACUTE [None]
